FAERS Safety Report 19987757 (Version 1)
Quarter: 2021Q4

REPORT INFORMATION
  Report Type: Other
  Country: PT (occurrence: PT)
  Receive Date: 20211022
  Receipt Date: 20211022
  Transmission Date: 20220303
  Serious: Yes (Other)
  Sender: FDA-Public Use
  Company Number: PT-INVATECH-000145

PATIENT
  Age: 40 Year
  Sex: Female

DRUGS (5)
  1. CALCITRIOL [Suspect]
     Active Substance: CALCITRIOL
     Indication: Hereditary hypophosphataemic rickets
     Dosage: 4 ID
  2. PHOSPHORUS [Suspect]
     Active Substance: PHOSPHORUS
     Indication: Hereditary hypophosphataemic rickets
     Dosage: 500 MG 4 ID
  3. CALCIUM CARBONATE [Concomitant]
     Active Substance: CALCIUM CARBONATE
     Indication: Walking disability
  4. CHOLECALCIFEROL [Concomitant]
     Active Substance: CHOLECALCIFEROL
     Indication: Hereditary hypophosphataemic rickets
     Dosage: 600.000 UI ONCE DAILY
  5. PHOSPHORIC ACID [Concomitant]
     Active Substance: PHOSPHORIC ACID
     Indication: Hereditary hypophosphataemic rickets
     Dosage: 4 ID
     Route: 048

REACTIONS (5)
  - Hyperparathyroidism tertiary [Recovered/Resolved]
  - Hyperparathyroidism secondary [Recovered/Resolved]
  - Nephrolithiasis [Unknown]
  - Parathyroid hyperplasia [Recovered/Resolved]
  - Disease recurrence [Recovered/Resolved]
